FAERS Safety Report 10415182 (Version 2)
Quarter: 2015Q2

REPORT INFORMATION
  Report Type: Spontaneous
  Country: JP (occurrence: JP)
  Receive Date: 20140828
  Receipt Date: 20150626
  Transmission Date: 20150821
  Serious: Yes (Hospitalization, Other)
  Sender: FDA-Public Use
  Company Number: JP-UCBSA-2014010000

PATIENT
  Age: 1 Year
  Sex: Male
  Weight: 5.2 kg

DRUGS (4)
  1. PHENOBAL [Concomitant]
     Active Substance: PHENOBARBITAL
     Dosage: 30 MG DAILY
     Route: 048
  2. KEPPRA [Suspect]
     Active Substance: LEVETIRACETAM
     Dosage: 75 MG, 2X/DAY (BID)
     Route: 048
     Dates: start: 20140603, end: 20140608
  3. DIAPP [Concomitant]
     Active Substance: DIAZEPAM
     Route: 054
  4. KEPPRA [Suspect]
     Active Substance: LEVETIRACETAM
     Indication: EPILEPSY
     Dosage: 50 MG, 2X/DAY (BID)
     Route: 048
     Dates: start: 20140530, end: 20140602

REACTIONS (3)
  - Off label use [Unknown]
  - Status epilepticus [Unknown]
  - Blood creatine phosphokinase increased [Recovering/Resolving]

NARRATIVE: CASE EVENT DATE: 20140530
